FAERS Safety Report 8514449-9 (Version None)
Quarter: 2012Q2

REPORT INFORMATION
  Report Type: 
  Country: None (occurrence: None)
  Receive Date: 20120406
  Receipt Date: 20100603
  Transmission Date: 20120825
  Serious: Yes (Hospitalization)
  Sender: FDA-Public Use
  Company Number: PHHY2010US34399

PATIENT
  Age: 76 Year
  Sex: Male
  Weight: 146.9 kg

DRUGS (1)
  1. TASIGNA [Suspect]
     Indication: CHRONIC MYELOID LEUKAEMIA
     Dosage: 400 MG, BID, ORAL; UNK, ORAL
     Route: 048
     Dates: start: 20100513

REACTIONS (2)
  - ABDOMINAL PAIN [None]
  - PANCREATITIS [None]
